FAERS Safety Report 4855901-7 (Version None)
Quarter: 2005Q4

REPORT INFORMATION
  Report Type: 
  Country: None (occurrence: None)
  Receive Date: 20051216
  Receipt Date: 20051214
  Transmission Date: 20060501
  Serious: Yes (Other)
  Sender: FDA-Public Use
  Company Number: US-GLAXOSMITHKLINE-A0585877A

PATIENT
  Sex: Female

DRUGS (3)
  1. PAXIL [Suspect]
     Indication: DEPRESSION
     Route: 048
     Dates: start: 19980101, end: 20040101
  2. PAROXETINE HCL [Suspect]
     Dates: start: 20040101, end: 20051101
  3. MULTIPLE MEDICATIONS [Concomitant]

REACTIONS (3)
  - HEADACHE [None]
  - OVERDOSE [None]
  - SUICIDAL IDEATION [None]
